FAERS Safety Report 5943990-8 (Version None)
Quarter: 2008Q4

REPORT INFORMATION
  Report Type: 
  Country: None (occurrence: None)
  Receive Date: 20081106
  Receipt Date: 20081027
  Transmission Date: 20090506
  Serious: Yes (Other)
  Sender: FDA-Public Use
  Company Number: AT-ELI_LILLY_AND_COMPANY-AT200810006600

PATIENT
  Age: 42 Year
  Sex: Female
  Weight: 111 kg

DRUGS (23)
  1. CYMBALTA [Suspect]
     Dosage: 60 MG, DAILY (1/D)
     Route: 048
     Dates: start: 20080919, end: 20080922
  2. CYMBALTA [Suspect]
     Dosage: 120 MG, DAILY (1/D)
     Route: 048
     Dates: start: 20080923, end: 20081001
  3. CYMBALTA [Suspect]
     Dosage: 180 MG, DAILY (1/D)
     Route: 048
     Dates: start: 20081002
  4. ABILIFY [Concomitant]
     Dosage: 5 MG, DAILY (1/D)
     Route: 065
     Dates: start: 20080919, end: 20080922
  5. ABILIFY [Concomitant]
     Dosage: 10 MG, DAILY (1/D)
     Route: 065
     Dates: start: 20080923, end: 20081022
  6. ABILIFY [Concomitant]
     Dosage: 15 MG, DAILY (1/D)
     Route: 065
     Dates: start: 20081023
  7. SEROQUEL [Concomitant]
     Dosage: 100 MG, UNKNOWN
     Route: 065
     Dates: start: 20080918
  8. SEROQUEL [Concomitant]
     Dosage: 300 MG, DAILY (1/D)
     Route: 065
     Dates: start: 20080919, end: 20080929
  9. SEROQUEL [Concomitant]
     Dosage: 600 MG, 300 MG TWICE A DAY
     Route: 065
     Dates: start: 20080930
  10. TOPAMAX [Concomitant]
     Dosage: 25 MG, DAILY (1/D)
     Route: 065
     Dates: start: 20080919, end: 20080923
  11. TOPAMAX [Concomitant]
     Dosage: 50 MG, DAILY (1/D)
     Route: 065
     Dates: start: 20080924, end: 20080925
  12. TOPAMAX [Concomitant]
     Dosage: 75 MG, DAILY (1/D)
     Route: 065
     Dates: start: 20080926, end: 20081001
  13. TOPAMAX [Concomitant]
     Dosage: 100 MG, DAILY (1/D)
     Route: 065
     Dates: start: 20081002, end: 20081005
  14. TOPAMAX [Concomitant]
     Dosage: 150 MG, DAILY (1/D)
     Route: 065
     Dates: start: 20081006, end: 20081017
  15. TOPAMAX [Concomitant]
     Dosage: 200 MG, 50 MG TWICE IN THE MORNING AND 50 MG TWICE AT NIGHT
     Route: 065
     Dates: start: 20081018
  16. XANOR [Concomitant]
     Dosage: 2 MG, DAILY (1/D)
     Route: 065
     Dates: start: 20080920, end: 20081015
  17. XANOR [Concomitant]
     Dosage: UNK, 1.5 - 0.5 DAILY
     Route: 065
     Dates: start: 20081016
  18. MOGADON [Concomitant]
     Dosage: 2 D/F, EACH EVENING
     Route: 065
     Dates: start: 20080929
  19. EUTHYROX [Concomitant]
     Dosage: 75 UG, DAILY (1/D)
     Route: 065
  20. VOLTAREN                                /SCH/ [Concomitant]
     Dosage: 100 MG, EACH EVENING
     Route: 065
  21. LOVENOX [Concomitant]
     Dosage: 20 MG, UNKNOWN
     Route: 058
     Dates: start: 20080929, end: 20081009
  22. NEXIAM /01479301/ [Concomitant]
     Dosage: 40 MG, EACH MORNING
     Route: 065
     Dates: start: 20080922
  23. POLYETHYLENE GLYCOL [Concomitant]
     Dosage: UNK, 4/D
     Route: 065
     Dates: start: 20081003

REACTIONS (4)
  - ALANINE AMINOTRANSFERASE INCREASED [None]
  - ASPARTATE AMINOTRANSFERASE INCREASED [None]
  - GAMMA-GLUTAMYLTRANSFERASE INCREASED [None]
  - OVERDOSE [None]
